FAERS Safety Report 15193004 (Version 2)
Quarter: 2018Q3

REPORT INFORMATION
  Report Type: Report from Study
  Country: None (occurrence: CO)
  Receive Date: 20180725
  Receipt Date: 20180810
  Transmission Date: 20181010
  Serious: Yes (Hospitalization, Other)
  Sender: FDA-Public Use
  Company Number: CO-ABBVIE-18K-036-2429638-00

PATIENT
  Age: 42 Year
  Sex: Female
  Weight: 57 kg

DRUGS (3)
  1. AZATHIOPRINE. [Concomitant]
     Active Substance: AZATHIOPRINE
     Indication: PRODUCT USED FOR UNKNOWN INDICATION
  2. HUMIRA [Suspect]
     Active Substance: ADALIMUMAB
     Indication: COLITIS ULCERATIVE
     Route: 058
     Dates: start: 20180301, end: 20180627
  3. DEOXYCHOLIC ACID [Concomitant]
     Active Substance: DEOXYCHOLIC ACID
     Indication: CHOLANGITIS
     Dates: start: 2013

REACTIONS (5)
  - Exposure during pregnancy [Unknown]
  - Pelvic pain [Recovered/Resolved]
  - Menstruation irregular [Unknown]
  - Vaginal haemorrhage [Recovered/Resolved]
  - Abortion incomplete [Unknown]

NARRATIVE: CASE EVENT DATE: 2018
